FAERS Safety Report 5844492-X (Version None)
Quarter: 2008Q3

REPORT INFORMATION
  Report Type: 
  Country: None (occurrence: None)
  Receive Date: 20080811
  Receipt Date: 20080729
  Transmission Date: 20090109
  Serious: Yes (Hospitalization)
  Sender: FDA-Public Use
  Company Number: CIP08001433

PATIENT
  Age: 65 Year
  Sex: Female

DRUGS (1)
  1. BENET(RISEDRONATE SODIUM) TABLET, UNKNOWNMG [Suspect]
     Indication: OSTEOPOROSIS
     Dosage: 17.5 MG, 1 ONLY, ORAL
     Route: 048

REACTIONS (1)
  - MELAENA [None]
